FAERS Safety Report 15934778 (Version 1)
Quarter: 2019Q1

REPORT INFORMATION
  Report Type: Report from Study
  Country: US (occurrence: US)
  Receive Date: 20190207
  Receipt Date: 20190207
  Transmission Date: 20190417
  Serious: Yes (Hospitalization)
  Sender: FDA-Public Use
  Company Number: US-ACTELION-A-NJ2019-185835

PATIENT
  Age: 90 Year
  Sex: Female

DRUGS (22)
  1. ZOLOFT [Concomitant]
     Active Substance: SERTRALINE HYDROCHLORIDE
  2. OMEPRAZOLE. [Concomitant]
     Active Substance: OMEPRAZOLE
  3. FUROSEMIDE. [Concomitant]
     Active Substance: FUROSEMIDE
  4. TRACLEER [Suspect]
     Active Substance: BOSENTAN
     Indication: COR PULMONALE CHRONIC
     Dosage: 125 MG, UNK
     Route: 048
  5. DORZOLAMIDE [Concomitant]
     Active Substance: DORZOLAMIDE
  6. TIMOLOL. [Concomitant]
     Active Substance: TIMOLOL
  7. BRIMONIDINE [Concomitant]
     Active Substance: BRIMONIDINE TARTRATE
  8. TOBRAMYCIN. [Concomitant]
     Active Substance: TOBRAMYCIN
  9. LEVOTHYROXINE. [Concomitant]
     Active Substance: LEVOTHYROXINE
  10. AMITRIPTYLINE [Concomitant]
     Active Substance: AMITRIPTYLINE
  11. METOPROLOL. [Concomitant]
     Active Substance: METOPROLOL
     Dosage: 50 MG, UNK
  12. ALLOPURINOL. [Concomitant]
     Active Substance: ALLOPURINOL
  13. ATORVASTATIN [Concomitant]
     Active Substance: ATORVASTATIN
  14. HYDROCODONE BITARTRATE AND ACETAMINOPHEN [Concomitant]
     Active Substance: ACETAMINOPHEN\HYDROCODONE BITARTRATE
  15. TORSEMIDE. [Concomitant]
     Active Substance: TORSEMIDE
     Dosage: 5 MG, UNK
  16. DEXAMETHAZONE [Concomitant]
     Active Substance: DEXAMETHASONE
  17. KLOR-CON [Concomitant]
     Active Substance: POTASSIUM CHLORIDE
  18. TORSEMIDE. [Concomitant]
     Active Substance: TORSEMIDE
     Dosage: 20 MG, UNK
  19. ATENOLOL. [Concomitant]
     Active Substance: ATENOLOL
  20. WARFARIN [Concomitant]
     Active Substance: WARFARIN
  21. RANITIDINE. [Concomitant]
     Active Substance: RANITIDINE
  22. LOTEMAX [Concomitant]
     Active Substance: LOTEPREDNOL ETABONATE

REACTIONS (1)
  - Hospitalisation [Unknown]
